FAERS Safety Report 17128054 (Version 1)
Quarter: 2019Q4

REPORT INFORMATION
  Report Type: Spontaneous
  Country: US (occurrence: US)
  Receive Date: 20191209
  Receipt Date: 20191209
  Transmission Date: 20200122
  Serious: No
  Sender: FDA-Public Use
  Company Number: US-UCBSA-2017002398

PATIENT
  Sex: Male

DRUGS (4)
  1. VIMPAT [Suspect]
     Active Substance: LACOSAMIDE
     Indication: OFF LABEL USE
  2. VIMPAT [Suspect]
     Active Substance: LACOSAMIDE
     Indication: MUSCLE TWITCHING
  3. VIMPAT [Suspect]
     Active Substance: LACOSAMIDE
     Indication: CEREBRAL HAEMORRHAGE
     Dosage: UNK
     Dates: start: 20161206
  4. VIMPAT [Suspect]
     Active Substance: LACOSAMIDE
     Indication: DYSARTHRIA

REACTIONS (1)
  - No adverse event [Unknown]
